FAERS Safety Report 21436541 (Version 3)
Quarter: 2023Q4

REPORT INFORMATION
  Report Type: Report from Study
  Country: JP (occurrence: None)
  Receive Date: 20221010
  Receipt Date: 20231002
  Transmission Date: 20240110
  Serious: Yes (Death, Hospitalization, Other)
  Sender: FDA-Public Use
  Company Number: 2022A341144

PATIENT
  Age: 91 Year
  Sex: Male

DRUGS (1)
  1. ONDEXXYA [Suspect]
     Active Substance: ANDEXANET ALFA
     Indication: Subarachnoid haemorrhage
     Dosage: SEE NARRATIVE
     Route: 042

REACTIONS (9)
  - Brain contusion [Fatal]
  - Peripheral arterial occlusive disease [Unknown]
  - Necrosis of artery [Unknown]
  - Haemorrhage intracranial [Unknown]
  - Thrombosis [Unknown]
  - Systemic inflammatory response syndrome [Unknown]
  - Depressed level of consciousness [Unknown]
  - Melaena [Unknown]
  - Anaemia [Unknown]

NARRATIVE: CASE EVENT DATE: 20220601
